FAERS Safety Report 7945733-5 (Version None)
Quarter: 2011Q4

REPORT INFORMATION
  Report Type: 
  Country: None (occurrence: None)
  Receive Date: 20111129
  Receipt Date: 20111116
  Transmission Date: 20120403
  Serious: Yes (Hospitalization, Other)
  Sender: FDA-Public Use
  Company Number: IT-ELI_LILLY_AND_COMPANY-IT201111005337

PATIENT
  Sex: Male

DRUGS (5)
  1. RISPERDAL [Concomitant]
     Indication: SCHIZOAFFECTIVE DISORDER
     Dosage: 2 DF, UNK
  2. ZYPREXA [Suspect]
     Dosage: UNK
     Dates: start: 20070101
  3. ZYPREXA [Suspect]
     Dosage: 140 MG, SINGLE
     Route: 048
     Dates: start: 20111020, end: 20111020
  4. ZYPREXA [Suspect]
     Dosage: UNK
     Dates: start: 20080101
  5. LITHIUM CARBONATE [Concomitant]
     Indication: SCHIZOAFFECTIVE DISORDER
     Dosage: 3 DF, UNK
     Route: 048

REACTIONS (5)
  - HOSPITALISATION [None]
  - SUICIDE ATTEMPT [None]
  - INTENTIONAL OVERDOSE [None]
  - SOPOR [None]
  - INTENTIONAL SELF-INJURY [None]
